FAERS Safety Report 4907385-8 (Version None)
Quarter: 2006Q1

REPORT INFORMATION
  Report Type: 
  Country: None (occurrence: None)
  Receive Date: 20060208
  Receipt Date: 20060201
  Transmission Date: 20060701
  Serious: Yes (Other)
  Sender: FDA-Public Use
  Company Number: GBWYE014228SEP05

PATIENT
  Age: 49 Year
  Sex: Female

DRUGS (6)
  1. RAPAMUNE [Suspect]
     Indication: PROPHYLAXIS AGAINST TRANSPLANT REJECTION
     Dosage: 2 MG 1X PER 1 DAY ORAL
     Route: 048
     Dates: start: 20020601
  2. AZATHIOPRINE [Suspect]
     Indication: PROPHYLAXIS AGAINST TRANSPLANT REJECTION
     Dosage: 50 MG 1X PER 1 DAY ORAL
     Route: 048
     Dates: start: 20020130, end: 20050901
  3. HYDROXYCHLOROQUINE                (HYDROXYCHLOROQUINE) [Suspect]
     Indication: ARTHRALGIA
     Dosage: 100 MG 2X PER 1 DAY ORAL
     Route: 048
     Dates: start: 20040301, end: 20050901
  4. RISEDRONATE                     (RISEDRONATE) [Concomitant]
  5. ATORVASTATIN CALCIUM [Concomitant]
  6. CEPHRADINE           (CEFRADINE) [Concomitant]

REACTIONS (3)
  - DRUG INTERACTION [None]
  - LEUKOPENIA [None]
  - THROMBOCYTOPENIA [None]
